FAERS Safety Report 9377323 (Version 1)
Quarter: 2013Q3

REPORT INFORMATION
  Report Type: Spontaneous
  Country: PT (occurrence: PT)
  Receive Date: 20130701
  Receipt Date: 20130701
  Transmission Date: 20140515
  Serious: Yes (Death)
  Sender: FDA-Public Use
  Company Number: PHHY2013PT065092

PATIENT
  Age: 53 Year
  Sex: Male

DRUGS (4)
  1. SIMULECT [Suspect]
     Indication: LIVER TRANSPLANT
     Dosage: 20 MG, ON DAY 1
     Route: 042
  2. SIMULECT [Suspect]
     Dosage: 20 MG, ON DAY 4
     Route: 042
  3. RITUXIMAB [Concomitant]
     Dosage: 375 M/M2, UNK
  4. IMMUNOGLOBULIN I.V [Concomitant]
     Dosage: UNK UKN, UNK
     Route: 042

REACTIONS (3)
  - Multi-organ failure [Fatal]
  - Sepsis [Fatal]
  - Infection [Fatal]
